FAERS Safety Report 5399490-X (Version None)
Quarter: 2007Q3

REPORT INFORMATION
  Report Type: 
  Country: None (occurrence: None)
  Receive Date: 20070727
  Receipt Date: 20070716
  Transmission Date: 20080115
  Serious: Yes (Hospitalization, Disabling, Other)
  Sender: FDA-Public Use
  Company Number: US-PFIZER INC-2006108546

PATIENT
  Sex: Female
  Weight: 63.5 kg

DRUGS (6)
  1. CELEBREX [Suspect]
     Indication: ARTHRALGIA
  2. CELEBREX [Suspect]
     Indication: PAIN
  3. BEXTRA [Suspect]
     Indication: ARTHRALGIA
  4. VIOXX [Suspect]
     Indication: ARTHRALGIA
     Dates: start: 20021210, end: 20040930
  5. PREVACID [Concomitant]
  6. IBUPROFEN [Concomitant]

REACTIONS (7)
  - ARTHRALGIA [None]
  - CARDIAC FAILURE CONGESTIVE [None]
  - CEREBROVASCULAR ACCIDENT [None]
  - DEPRESSION [None]
  - OEDEMA PERIPHERAL [None]
  - REPRODUCTIVE TRACT DISORDER [None]
  - VISION BLURRED [None]
